FAERS Safety Report 6622509-2 (Version None)
Quarter: 2010Q1

REPORT INFORMATION
  Report Type: 
  Country: None (occurrence: None)
  Receive Date: 20100310
  Receipt Date: 20100201
  Transmission Date: 20100710
  Serious: No
  Sender: FDA-Public Use
  Company Number: US-BIOGENIDEC-2010BI003683

PATIENT
  Age: 38 Year
  Sex: Female

DRUGS (3)
  1. AVONEX [Suspect]
     Indication: MULTIPLE SCLEROSIS
     Route: 030
     Dates: start: 20050908, end: 20051006
  2. AVONEX [Suspect]
     Route: 030
     Dates: start: 20091211
  3. PREDNISONE [Concomitant]
     Indication: PREMEDICATION

REACTIONS (1)
  - GENERAL SYMPTOM [None]
